FAERS Safety Report 12833890 (Version 1)
Quarter: 2016Q4

REPORT INFORMATION
  Report Type: Spontaneous
  Country: FR (occurrence: FR)
  Receive Date: 20161010
  Receipt Date: 20161010
  Transmission Date: 20170207
  Serious: Yes (Hospitalization, Congenital Anomaly)
  Sender: FDA-Public Use
  Company Number: FR-ABBVIE-15P-056-1479060-00

PATIENT
  Age: 0 Day
  Sex: Male

DRUGS (1)
  1. DEPAKINE [Suspect]
     Active Substance: VALPROATE SODIUM
     Indication: MATERNAL EXPOSURE TIMING UNSPECIFIED
     Route: 064

REACTIONS (9)
  - Asthma [Unknown]
  - Talipes [Unknown]
  - Ventricular septal defect [Recovered/Resolved]
  - Exomphalos [Unknown]
  - Congenital genital malformation [Unknown]
  - Gastroschisis [Recovered/Resolved]
  - Developmental delay [Recovering/Resolving]
  - Foetal exposure during pregnancy [Unknown]
  - Congenital foot malformation [Unknown]

NARRATIVE: CASE EVENT DATE: 20070730
